FAERS Safety Report 6590791-6 (Version None)
Quarter: 2010Q1

REPORT INFORMATION
  Report Type: 
  Country: None (occurrence: None)
  Receive Date: 20100219
  Receipt Date: 20100208
  Transmission Date: 20100710
  Serious: Yes (Death, Hospitalization)
  Sender: FDA-Public Use
  Company Number: JP-PFIZER INC-2010017331

PATIENT

DRUGS (1)
  1. DIFLUCAN [Suspect]
     Dosage: 100MG /DAY
     Route: 048

REACTIONS (2)
  - BRADYCARDIA [None]
  - CEREBRAL HAEMORRHAGE [None]
